FAERS Safety Report 12705951 (Version 1)
Quarter: 2016Q3

REPORT INFORMATION
  Report Type: Spontaneous
  Country: TH (occurrence: TH)
  Receive Date: 20160901
  Receipt Date: 20160901
  Transmission Date: 20161109
  Serious: Yes (Hospitalization, Other)
  Sender: FDA-Public Use
  Company Number: TH-009507513-1608THA012774

PATIENT
  Age: 73 Year
  Sex: Female

DRUGS (1)
  1. INVANZ [Suspect]
     Active Substance: ERTAPENEM SODIUM
     Indication: LOCALISED INFECTION
     Dosage: UNK, AT HIP
     Route: 030
     Dates: start: 20160815

REACTIONS (8)
  - Seizure [Unknown]
  - Dysstasia [Unknown]
  - Fatigue [Unknown]
  - Abasia [Unknown]
  - Hallucination [Unknown]
  - Insomnia [Unknown]
  - Asthenia [Unknown]
  - Confusional state [Unknown]

NARRATIVE: CASE EVENT DATE: 20160816
